FAERS Safety Report 4412846-4 (Version None)
Quarter: 2004Q3

REPORT INFORMATION
  Report Type: 
  Country: None (occurrence: None)
  Receive Date: 20040730
  Receipt Date: 20040730
  Transmission Date: 20050211
  Serious: Yes (Hospitalization)
  Sender: FDA-Public Use
  Company Number: None

PATIENT
  Sex: Female
  Weight: 68.9467 kg

DRUGS (11)
  1. IRESSA [Suspect]
     Indication: PANCREATIC CARCINOMA
     Dosage: 250 MG DAILY ORAL
     Route: 048
     Dates: start: 20040723, end: 20041231
  2. GEMCITABINE 200 MG AND 1 GRAM VIALS ELI LILLY [Suspect]
     Indication: PANCREATIC CARCINOMA
     Dosage: 1750 MG WEEKLY X 7 INTRAVENOUS
     Route: 042
     Dates: start: 20040723, end: 20040903
  3. SYNTHROID [Concomitant]
  4. MAXZIDE [Concomitant]
  5. PROTONIX [Concomitant]
  6. PERCOCET [Concomitant]
  7. CENTRUM [Concomitant]
  8. XANAX [Concomitant]
  9. AMBIEN [Concomitant]
  10. GEMCITABINE [Concomitant]
  11. IRESSA [Concomitant]

REACTIONS (3)
  - CELLULITIS [None]
  - PROCEDURAL SITE REACTION [None]
  - URINARY TRACT INFECTION [None]
